FAERS Safety Report 8907184 (Version 1)
Quarter: 2012Q4

REPORT INFORMATION
  Report Type: 
  Country: US (occurrence: US)
  Receive Date: 20121114
  Receipt Date: 20121114
  Transmission Date: 20130627
  Serious: Yes (Other)
  Sender: FDA-Public Use
  Company Number: US-ACTELION-A-US2012-74289

PATIENT
  Age: 70 Year
  Sex: Female

DRUGS (5)
  1. VENTAVIS [Suspect]
     Indication: PULMONARY ARTERIAL HYPERTENSION
     Dosage: UNK
     Route: 055
  2. TRACLEER [Concomitant]
     Indication: PULMONARY ARTERIAL HYPERTENSION
     Dosage: UNK
     Route: 048
     Dates: start: 20101115
  3. COUMADIN [Concomitant]
  4. ADCIRCA [Concomitant]
  5. LASIX [Concomitant]

REACTIONS (3)
  - Aortic aneurysm [Unknown]
  - Cyst [Unknown]
  - Memory impairment [Unknown]
